FAERS Safety Report 8574935-2 (Version None)
Quarter: 2012Q3

REPORT INFORMATION
  Report Type: 
  Country: None (occurrence: None)
  Receive Date: 20120807
  Receipt Date: 20120726
  Transmission Date: 20120928
  Serious: Yes (Hospitalization)
  Sender: FDA-Public Use
  Company Number: US-BAYER-2012-039486

PATIENT
  Age: 29 Year
  Sex: Female

DRUGS (7)
  1. YAZ [Suspect]
     Indication: POLYCYSTIC OVARIES
     Dosage: UNK
  2. YASMIN [Suspect]
     Dosage: UNK
  3. GLUCOSAMINE SULFATE W/CHONDROITIN [Concomitant]
     Dosage: UNK
  4. MULTI-VITAMIN [Concomitant]
     Dosage: UNK
  5. DROSPIRENONE AND ETHINYL ESTRADIOL [Suspect]
     Dosage: UNK
  6. FISH OIL [Concomitant]
     Dosage: UNK
  7. GLUMETZA [Concomitant]
     Dosage: 500 MG,2 TABLETS DAILY WITH DINNER

REACTIONS (4)
  - PAIN [None]
  - INJURY [None]
  - DEEP VEIN THROMBOSIS [None]
  - PULMONARY EMBOLISM [None]
